FAERS Safety Report 8913591 (Version 1)
Quarter: 2012Q4

REPORT INFORMATION
  Report Type: 
  Country: US (occurrence: US)
  Receive Date: 20121119
  Receipt Date: 20121119
  Transmission Date: 20130627
  Serious: No
  Sender: FDA-Public Use
  Company Number: US-JNJFOC-20121105268

PATIENT
  Age: 38 Year
  Sex: Male

DRUGS (1)
  1. INVEGA SUSTENNA [Suspect]
     Indication: PRODUCT USED FOR UNKNOWN INDICATION
     Route: 042
     Dates: start: 2012, end: 201211

REACTIONS (3)
  - Oedema peripheral [Not Recovered/Not Resolved]
  - Musculoskeletal stiffness [Unknown]
  - Drug dose omission [Unknown]
